FAERS Safety Report 7228030-5 (Version None)
Quarter: 2011Q1

REPORT INFORMATION
  Report Type: 
  Country: None (occurrence: None)
  Receive Date: 20110112
  Receipt Date: 20110112
  Transmission Date: 20110831
  Serious: No
  Sender: FDA-Public Use
  Company Number: None

PATIENT
  Sex: Male
  Weight: 74.8435 kg

DRUGS (2)
  1. FLUTICASONE PROPIONATE NASAL SPRAY 50 MCG ROXANE LABORATORIES INC [Suspect]
     Indication: RHINITIS
     Dosage: 2 SPRAYS IN EACH NOSTRIL ONCE DAILY
     Dates: start: 20100802, end: 20100827
  2. FLUTICASONE PROPIONATE NASAL SPRAY 50 MCG ROXANE LABORATORIES INC [Suspect]
     Indication: ALLERGIC SINUSITIS
     Dosage: 2 SPRAYS IN EACH NOSTRIL ONCE DAILY
     Dates: start: 20100802, end: 20100827

REACTIONS (5)
  - CONDITION AGGRAVATED [None]
  - MULTIPLE ALLERGIES [None]
  - NASAL DISCOMFORT [None]
  - DRUG INEFFECTIVE [None]
  - PRODUCT ODOUR ABNORMAL [None]
